FAERS Safety Report 7996274-0 (Version None)
Quarter: 2011Q4

REPORT INFORMATION
  Report Type: 
  Country: None (occurrence: None)
  Receive Date: 20111220
  Receipt Date: 20111208
  Transmission Date: 20120403
  Serious: Yes (Hospitalization)
  Sender: FDA-Public Use
  Company Number: JP-ELI_LILLY_AND_COMPANY-JP201111003025

PATIENT
  Sex: Male
  Weight: 54 kg

DRUGS (8)
  1. GEMZAR [Suspect]
     Indication: PANCREATIC CARCINOMA STAGE II
     Dosage: 1.2 G, OTHER
     Route: 042
     Dates: start: 20100514, end: 20110603
  2. PREDNISOLONE [Concomitant]
     Dosage: 5 MG, BID
  3. METHYCOBAL [Concomitant]
     Dosage: 500 MG, BID
  4. SELTOUCH [Concomitant]
  5. LANSOPRAZOLE [Concomitant]
     Dosage: 15 MG, QD
  6. JANUVIA [Concomitant]
     Dosage: 25 MG, QD
  7. LENDORMIN [Concomitant]
     Dosage: 1 DF, QD
  8. ONEALFA [Concomitant]
     Dosage: 0.5 MG, QD

REACTIONS (1)
  - NEUROPATHY PERIPHERAL [None]
